FAERS Safety Report 7050202-3 (Version None)
Quarter: 2010Q4

REPORT INFORMATION
  Report Type: 
  Country: None (occurrence: None)
  Receive Date: 20101018
  Receipt Date: 20101008
  Transmission Date: 20110411
  Serious: Yes (Other)
  Sender: FDA-Public Use
  Company Number: US-PURDUE-USA-2010-0048826

PATIENT
  Sex: Male

DRUGS (1)
  1. OXYCONTIN [Suspect]
     Indication: SICKLE CELL ANAEMIA
     Dosage: 100 MG, SEE TEXT
     Route: 048

REACTIONS (2)
  - CARDIAC FLUTTER [None]
  - INADEQUATE ANALGESIA [None]
